APPROVED DRUG PRODUCT: MEXILETINE HYDROCHLORIDE
Active Ingredient: MEXILETINE HYDROCHLORIDE
Strength: 150MG
Dosage Form/Route: CAPSULE;ORAL
Application: A214352 | Product #001 | TE Code: AB
Applicant: NOVAST LABORATORIES LTD
Approved: Jan 25, 2021 | RLD: No | RS: No | Type: RX